FAERS Safety Report 6013507-0 (Version None)
Quarter: 2008Q4

REPORT INFORMATION
  Report Type: 
  Country: None (occurrence: None)
  Receive Date: 20081219
  Receipt Date: 20081208
  Transmission Date: 20090506
  Serious: Yes (Other)
  Sender: FDA-Public Use
  Company Number: PHHY2008AU31435

PATIENT
  Sex: Male

DRUGS (3)
  1. EXELON [Suspect]
     Dosage: 5 PATCH
     Route: 062
  2. EXELON [Suspect]
     Dosage: 5 PATCH + 10 PATCH
  3. EXELON [Suspect]
     Dosage: 10 PATCH
     Route: 062

REACTIONS (3)
  - DRUG ADMINISTRATION ERROR [None]
  - NAUSEA [None]
  - VOMITING [None]
